FAERS Safety Report 7226008-9 (Version None)
Quarter: 2011Q1

REPORT INFORMATION
  Report Type: 
  Country: None (occurrence: None)
  Receive Date: 20110113
  Receipt Date: 20101229
  Transmission Date: 20110831
  Serious: No
  Sender: FDA-Public Use
  Company Number: US-B.I. PHARMACEUTICALS,INC./RIDGEFIELD-2010-BP-13421BP

PATIENT
  Sex: Female

DRUGS (4)
  1. LISINOPRIL [Concomitant]
     Indication: HYPERTENSION
  2. METOPROLOL [Concomitant]
     Indication: HYPERTENSION
  3. PRADAXA [Suspect]
     Indication: ATRIAL FIBRILLATION
     Dosage: 300 MG
     Route: 048
     Dates: start: 20101118
  4. BONE STIMULATOR [Concomitant]
     Indication: UPPER LIMB FRACTURE

REACTIONS (4)
  - PAIN [None]
  - UNEVALUABLE EVENT [None]
  - PAIN IN EXTREMITY [None]
  - CONTUSION [None]
